FAERS Safety Report 20067078 (Version 1)
Quarter: 2021Q4

REPORT INFORMATION
  Report Type: Report from Study
  Country: US (occurrence: US)
  Receive Date: 20211115
  Receipt Date: 20211115
  Transmission Date: 20220304
  Serious: Yes (Hospitalization)
  Sender: FDA-Public Use
  Company Number: US-BIOGEN-2021BI01067777

PATIENT
  Sex: Female
  Weight: 16.344 kg

DRUGS (1)
  1. SPINRAZA [Suspect]
     Active Substance: NUSINERSEN
     Indication: Spinal muscular atrophy
     Dosage: PHYSICIAN TO ADMINISTER 12MG/5ML INTRATHECALLY ONCE EVERY 4 MONTHS.
     Route: 037

REACTIONS (1)
  - Anaesthetic complication [Unknown]
